FAERS Safety Report 24760625 (Version 1)
Quarter: 2024Q4

REPORT INFORMATION
  Report Type: Report from Study
  Country: JP (occurrence: JP)
  Receive Date: 20241220
  Receipt Date: 20241220
  Transmission Date: 20250114
  Serious: Yes (Other)
  Sender: AKEBIA THERAPEUTICS
  Company Number: JP-MTPC-MTPC2024-0025132

PATIENT
  Age: 75 Year
  Sex: Female
  Weight: 42 kg

DRUGS (8)
  1. VADADUSTAT [Suspect]
     Active Substance: VADADUSTAT
     Indication: Nephrogenic anaemia
     Dosage: 300 MILLIGRAM
     Route: 048
     Dates: start: 20220317, end: 20230215
  2. SODIUM FERROUS CITRATE [Concomitant]
     Active Substance: SODIUM FERROUS CITRATE
     Indication: Product used for unknown indication
     Dosage: 100 MILLIGRAM, QD
     Route: 048
     Dates: start: 20220319
  3. AZILSARTAN KAMEDOXOMIL [Concomitant]
     Active Substance: AZILSARTAN KAMEDOXOMIL
     Indication: Product used for unknown indication
     Dosage: 40 MILLIGRAM, QD
     Route: 048
     Dates: end: 20220315
  4. VONOPRAZAN FUMARATE [Concomitant]
     Active Substance: VONOPRAZAN FUMARATE
     Indication: Illness
     Dosage: 10 MILLIGRAM, QD
     Route: 048
  5. ROSUVASTATIN CALCIUM [Concomitant]
     Active Substance: ROSUVASTATIN CALCIUM
     Indication: Illness
     Dosage: 5 MILLIGRAM, QD
     Route: 048
  6. SPIRONOLACTONE [Concomitant]
     Active Substance: SPIRONOLACTONE
     Indication: Illness
     Dosage: 25 MILLIGRAM, QD
     Route: 048
  7. SUVOREXANT [Concomitant]
     Active Substance: SUVOREXANT
     Indication: Prophylaxis
     Dosage: 15 MILLIGRAM, QD
     Route: 048
  8. RAMELTEON [Concomitant]
     Active Substance: RAMELTEON
     Indication: Prophylaxis
     Dosage: 8 MILLIGRAM, QD
     Route: 048

REACTIONS (1)
  - Squamous cell carcinoma of lung [Unknown]

NARRATIVE: CASE EVENT DATE: 20230711
